FAERS Safety Report 4738493-2 (Version None)
Quarter: 2005Q3

REPORT INFORMATION
  Report Type: 
  Country: None (occurrence: None)
  Receive Date: 20050809
  Receipt Date: 20050725
  Transmission Date: 20060218
  Serious: Yes (Congenital Anomaly)
  Sender: FDA-Public Use
  Company Number: GB-JNJFOC-20050503081

PATIENT
  Sex: Male

DRUGS (2)
  1. TOPIRAMATE [Suspect]
     Indication: EPILEPSY
     Route: 064
  2. VALPROATE [Suspect]
     Indication: EPILEPSY
     Route: 064

REACTIONS (5)
  - APGAR SCORE LOW [None]
  - CAESAREAN SECTION [None]
  - CONGENITAL ANOMALY [None]
  - CRANIOSYNOSTOSIS [None]
  - MATERNAL DRUGS AFFECTING FOETUS [None]
